FAERS Safety Report 17745479 (Version 5)
Quarter: 2020Q2

REPORT INFORMATION
  Report Type: Spontaneous
  Country: US (occurrence: US)
  Receive Date: 20200505
  Receipt Date: 20200619
  Transmission Date: 20200714
  Serious: No
  Sender: FDA-Public Use
  Company Number: US-ALKERMES INC.-ALK-2020-001840

PATIENT
  Age: 28 Year
  Sex: Female
  Weight: 48.98 kg

DRUGS (1)
  1. VIVITROL [Suspect]
     Active Substance: NALTREXONE
     Indication: ALCOHOLISM
     Dosage: 380 MG, QMO
     Route: 030
     Dates: start: 20200415, end: 20200415

REACTIONS (10)
  - Hypophagia [Recovered/Resolved]
  - Nausea [Not Recovered/Not Resolved]
  - Feeling hot [Unknown]
  - Clumsiness [Recovered/Resolved]
  - Hypoglycaemia [Recovered/Resolved]
  - Vomiting [Recovered/Resolved]
  - Dizziness [Recovering/Resolving]
  - Drug abuse [Not Recovered/Not Resolved]
  - Hypotension [Recovered/Resolved]
  - Constipation [Not Recovered/Not Resolved]

NARRATIVE: CASE EVENT DATE: 2020
